FAERS Safety Report 15877618 (Version 1)
Quarter: 2019Q1

REPORT INFORMATION
  Report Type: Spontaneous
  Country: FR (occurrence: FR)
  Receive Date: 20190128
  Receipt Date: 20190128
  Transmission Date: 20190417
  Serious: Yes (Life-Threatening, Hospitalization)
  Sender: FDA-Public Use
  Company Number: FR-ZYDUS-032819

PATIENT
  Age: 84 Year
  Sex: Female
  Weight: 81.8 kg

DRUGS (14)
  1. INSULIN ASPART [Concomitant]
     Active Substance: INSULIN ASPART
  2. FUROSEMIDE. [Concomitant]
     Active Substance: FUROSEMIDE
  3. ABASAGLAR [Concomitant]
     Active Substance: INSULIN GLARGINE
  4. ACETYLSALICYLATE LYSINE/ACETYLSALICYLIC ACID [Concomitant]
  5. AMLODIPINE [Concomitant]
     Active Substance: AMLODIPINE BESYLATE
  6. ESOMEPRAZOLE. [Concomitant]
     Active Substance: ESOMEPRAZOLE MAGNESIUM
  7. LACTULOSE. [Concomitant]
     Active Substance: LACTULOSE
  8. RILMENIDINE/RILMENIDINE PHOSPHATE [Concomitant]
  9. ATORVASTATIN [Concomitant]
     Active Substance: ATORVASTATIN
  10. VENLAFAXINE/VENLAFAXINE HYDROCHLORIDE [Suspect]
     Active Substance: VENLAFAXINE HYDROCHLORIDE
     Indication: PRODUCT ADMINISTRATION ERROR
     Route: 048
     Dates: start: 20181206
  11. HYDROCORTISONE. [Suspect]
     Active Substance: HYDROCORTISONE
     Indication: PRODUCT ADMINISTRATION ERROR
     Route: 048
     Dates: start: 20181206
  12. ATENOLOL/CHLORTALIDONE [Concomitant]
  13. GABAPENTIN. [Suspect]
     Active Substance: GABAPENTIN
     Indication: PRODUCT ADMINISTRATION ERROR
     Route: 048
     Dates: start: 20181206
  14. SERESTA [Suspect]
     Active Substance: OXAZEPAM
     Indication: PRODUCT ADMINISTRATION ERROR
     Route: 048
     Dates: start: 20181206

REACTIONS (5)
  - Anuria [Recovered/Resolved]
  - Product administration error [Recovered/Resolved]
  - Wrong patient received product [Recovered/Resolved]
  - Somnolence [Recovered/Resolved]
  - Hypercapnia [Recovered/Resolved]

NARRATIVE: CASE EVENT DATE: 20181206
